FAERS Safety Report 25935599 (Version 1)
Quarter: 2025Q4

REPORT INFORMATION
  Report Type: Spontaneous
  Country: US (occurrence: US)
  Receive Date: 20251017
  Receipt Date: 20251017
  Transmission Date: 20260118
  Serious: No
  Sender: SANOFI AVENTIS
  Company Number: US-SA-2025SA309033

PATIENT
  Age: 59 Year
  Sex: Female

DRUGS (1)
  1. DUPIXENT [Suspect]
     Active Substance: DUPILUMAB
     Indication: Chronic obstructive pulmonary disease
     Dosage: 300 MG, QOW
     Route: 058

REACTIONS (7)
  - Respiration abnormal [Unknown]
  - Condition aggravated [Unknown]
  - Abdominal discomfort [Unknown]
  - Eructation [Unknown]
  - Gastrointestinal tract irritation [Unknown]
  - Upper respiratory tract infection [Unknown]
  - Diarrhoea [Unknown]
